FAERS Safety Report 5189805-X (Version None)
Quarter: 2006Q4

REPORT INFORMATION
  Report Type: 
  Country: None (occurrence: None)
  Receive Date: 20061215
  Receipt Date: 20061204
  Transmission Date: 20070319
  Serious: No
  Sender: FDA-Public Use
  Company Number: 2006134246

PATIENT
  Age: 48 Year
  Sex: Female

DRUGS (5)
  1. AROMASIN [Suspect]
     Indication: BREAST CANCER
     Dosage: 25 MG (DAILY), ORAL
     Route: 048
     Dates: start: 20060808
  2. AROMASIN [Suspect]
     Indication: BREAST CANCER RECURRENT
     Dosage: 25 MG (DAILY), ORAL
     Route: 048
     Dates: start: 20060808
  3. ARIMIDEX [Suspect]
     Indication: BREAST CANCER RECURRENT
     Dosage: 1 MG, ORAL
     Route: 048
     Dates: start: 20060701, end: 20060807
  4. NOLVADEX [Suspect]
     Indication: BREAST CANCER
     Dosage: ORAL
     Route: 048
     Dates: start: 20060301, end: 20060701
  5. FARESTON [Suspect]
     Indication: BREAST CANCER RECURRENT
     Dosage: 40 MG (DAILY), ORAL
     Route: 048
     Dates: start: 20061031

REACTIONS (3)
  - CONDITION AGGRAVATED [None]
  - METASTASES TO BONE [None]
  - METRORRHAGIA [None]
